FAERS Safety Report 11484629 (Version 1)
Quarter: 2015Q3

REPORT INFORMATION
  Report Type: Spontaneous
  Country: US (occurrence: US)
  Receive Date: 20150903
  Receipt Date: 20150903
  Transmission Date: 20151125
  Serious: No
  Sender: FDA-Public Use
  Company Number: US-ELI_LILLY_AND_COMPANY-US201208005036

PATIENT
  Sex: Female

DRUGS (1)
  1. CYMBALTA [Suspect]
     Active Substance: DULOXETINE HYDROCHLORIDE
     Indication: ANXIETY
     Dosage: 30 MG, QD
     Route: 065
     Dates: start: 201104, end: 201207

REACTIONS (4)
  - Pain [Recovered/Resolved]
  - Abdominal discomfort [Recovered/Resolved]
  - Pancreatic enzymes increased [Recovered/Resolved]
  - Nausea [Recovered/Resolved]
